FAERS Safety Report 26135774 (Version 1)
Quarter: 2025Q4

REPORT INFORMATION
  Report Type: Spontaneous
  Country: US (occurrence: None)
  Receive Date: 20251209
  Receipt Date: 20251209
  Transmission Date: 20260117
  Serious: Yes (Other)
  Sender: APOTEX
  Company Number: US-APOTEX-2025AP033431

PATIENT
  Age: 48 Year
  Sex: Male

DRUGS (2)
  1. TESTOSTERONE [Suspect]
     Active Substance: TESTOSTERONE
     Indication: Hypogonadism
     Dosage: UNK
     Route: 065
  2. VOSILASARM [Suspect]
     Active Substance: VOSILASARM
     Indication: Muscle building therapy
     Dosage: UNK
     Route: 065

REACTIONS (3)
  - Aortic thrombosis [Recovered/Resolved]
  - Splenic infarction [Recovered/Resolved]
  - Renal infarct [Recovered/Resolved]
